FAERS Safety Report 18398484 (Version 2)
Quarter: 2020Q4

REPORT INFORMATION
  Report Type: Report from Study
  Country: US (occurrence: US)
  Receive Date: 20201019
  Receipt Date: 20201023
  Transmission Date: 20210114
  Serious: Yes (Death, Life-Threatening, Hospitalization, Other)
  Sender: FDA-Public Use
  Company Number: US-BRISTOL-MYERS SQUIBB COMPANY-BMS-2020-085259

PATIENT
  Age: 78 Year
  Sex: Male
  Weight: 81.6 kg

DRUGS (2)
  1. NIVOLUMAB [Suspect]
     Active Substance: NIVOLUMAB
     Indication: METASTATIC MALIGNANT MELANOMA
     Dosage: 226.8 MILLIGRAM
     Route: 042
     Dates: start: 20200710, end: 20200825
  2. IPILIMUMAB [Suspect]
     Active Substance: IPILIMUMAB
     Indication: METASTATIC MALIGNANT MELANOMA
     Dosage: 75.6 MILLIGRAM
     Route: 042
     Dates: start: 20200710, end: 20200825

REACTIONS (8)
  - Anaemia [Unknown]
  - Nausea [Unknown]
  - Headache [Unknown]
  - Malignant neoplasm progression [Fatal]
  - Abdominal pain [Unknown]
  - Vomiting [Unknown]
  - Diarrhoea [Unknown]
  - Lipase increased [Unknown]

NARRATIVE: CASE EVENT DATE: 20200917
